FAERS Safety Report 6498374-3 (Version None)
Quarter: 2009Q4

REPORT INFORMATION
  Report Type: 
  Country: None (occurrence: None)
  Receive Date: 20091125
  Receipt Date: 20090702
  Transmission Date: 20100525
  Serious: Yes (Other)
  Sender: FDA-Public Use
  Company Number: 2009BH010946

PATIENT
  Age: 53 Year
  Sex: Male
  Weight: 77.3 kg

DRUGS (13)
  1. DIANEAL [Suspect]
     Indication: PERITONEAL DIALYSIS
     Dosage: 15.5 L ; EVERY DAY ; IP
     Route: 033
     Dates: start: 20020901
  2. DIANEAL [Suspect]
     Indication: PERITONEAL DIALYSIS
     Dosage: 2 L ; EVERY DAY ; IP
     Route: 033
     Dates: start: 20020901
  3. AMOXICILLIN [Concomitant]
  4. ASPIRIN [Concomitant]
  5. CARVEDILOL [Concomitant]
  6. EPOGEN [Concomitant]
  7. IRON SALTS [Concomitant]
  8. NEPHROCAPS [Concomitant]
  9. NIFEDIPINE [Concomitant]
  10. SEVELAMER [Concomitant]
  11. RECALTROL [Concomitant]
  12. SENSIPAR [Concomitant]
  13. SIMVASTATIN [Concomitant]

REACTIONS (2)
  - PERITONEAL DIALYSIS COMPLICATION [None]
  - PERITONITIS BACTERIAL [None]
